FAERS Safety Report 20901549 (Version 1)
Quarter: 2022Q2

REPORT INFORMATION
  Report Type: Spontaneous
  Country: US (occurrence: US)
  Receive Date: 20220601
  Receipt Date: 20220601
  Transmission Date: 20220721
  Serious: Yes (Other)
  Sender: FDA-Public Use
  Company Number: US-BRISTOL-MYERS SQUIBB COMPANY-2022-040433

PATIENT
  Age: 79 Year
  Sex: Female
  Weight: 50.8 kg

DRUGS (1)
  1. REVLIMID [Suspect]
     Active Substance: LENALIDOMIDE
     Indication: Plasma cell myeloma
     Dosage: FREQUENCY: 2W ON, 1W OFF
     Route: 048
     Dates: start: 20220222

REACTIONS (5)
  - Diarrhoea [Unknown]
  - Constipation [Unknown]
  - Bone pain [Unknown]
  - Gastrointestinal disorder [Unknown]
  - Arthralgia [Unknown]
